FAERS Safety Report 6712257-2 (Version None)
Quarter: 2010Q2

REPORT INFORMATION
  Report Type: 
  Country: None (occurrence: None)
  Receive Date: 20100505
  Receipt Date: 20100428
  Transmission Date: 20101027
  Serious: Yes (Hospitalization, Other)
  Sender: FDA-Public Use
  Company Number: US-ABBOTT-10P-163-0641724-00

PATIENT
  Sex: Female
  Weight: 104.42 kg

DRUGS (9)
  1. NIASPAN [Suspect]
     Indication: BLOOD CHOLESTEROL INCREASED
     Dosage: AT HOUR OF SLEEP
     Route: 048
     Dates: start: 20100301
  2. NIASPAN [Suspect]
  3. GABAPENTIN [Concomitant]
     Indication: DRUG USE FOR UNKNOWN INDICATION
  4. OXYCODONE HCL [Concomitant]
     Indication: BACK PAIN
     Route: 048
  5. ADVAIR DISKUS 100/50 [Concomitant]
     Indication: ASTHMA
  6. XOPENEX [Concomitant]
     Indication: ASTHMA
     Dosage: 4 TIMES A DAY AS NEEDED
  7. DOXAZOSIN [Concomitant]
     Indication: HYPERTENSION
     Dates: end: 20100401
  8. LISINOPRIL [Concomitant]
     Indication: HYPERTENSION
     Dates: end: 20100401
  9. HYDROCHLOROTHIAZIDE [Concomitant]
     Indication: HYPERTENSION
     Dates: end: 20100401

REACTIONS (8)
  - ANXIETY [None]
  - BLOOD ELECTROLYTES ABNORMAL [None]
  - BLOOD PRESSURE DECREASED [None]
  - CHEST X-RAY ABNORMAL [None]
  - EPISTAXIS [None]
  - NAUSEA [None]
  - PAIN [None]
  - VOMITING [None]
